FAERS Safety Report 5268287-3 (Version None)
Quarter: 2007Q1

REPORT INFORMATION
  Report Type: 
  Country: None (occurrence: None)
  Receive Date: 20070319
  Receipt Date: 20070309
  Transmission Date: 20070707
  Serious: Yes (Hospitalization, Other)
  Sender: FDA-Public Use
  Company Number: CHWYE949609MAR07

PATIENT
  Age: 90 Year
  Sex: Female
  Weight: 43 kg

DRUGS (6)
  1. EFFEXOR [Suspect]
     Indication: DEPRESSION
     Route: 048
     Dates: start: 20051124, end: 20051221
  2. EFFEXOR [Suspect]
     Route: 048
     Dates: start: 20060208, end: 20060212
  3. EFFEXOR [Suspect]
     Route: 048
     Dates: start: 20060213, end: 20060406
  4. ARICEPT [Concomitant]
     Indication: DEMENTIA ALZHEIMER'S TYPE
     Route: 048
     Dates: start: 20050801
  5. VITARUBIN [Concomitant]
     Indication: ANAEMIA VITAMIN B12 DEFICIENCY
     Route: 058
  6. LISINOPRIL [Suspect]
     Indication: ESSENTIAL HYPERTENSION
     Route: 048

REACTIONS (6)
  - ASTHENIA [None]
  - CONDITION AGGRAVATED [None]
  - DELIRIUM [None]
  - FALL [None]
  - HALLUCINATION, VISUAL [None]
  - HYPONATRAEMIA [None]
